FAERS Safety Report 8529147-5 (Version None)
Quarter: 2012Q3

REPORT INFORMATION
  Report Type: 
  Country: None (occurrence: None)
  Receive Date: 20120723
  Receipt Date: 20120718
  Transmission Date: 20120928
  Serious: Yes (Hospitalization, Other)
  Sender: FDA-Public Use
  Company Number: US-AMGEN-USASP2011066105

PATIENT
  Age: 67 Year
  Sex: Female

DRUGS (6)
  1. ZOCOR [Concomitant]
     Dosage: UNK
     Route: 048
  2. METOPROLOL SUCCINATE [Concomitant]
     Dosage: UNK
     Route: 048
  3. ENBREL [Suspect]
     Indication: PSORIASIS
     Dosage: 50 MG, 2 TIMES/WK
     Route: 058
     Dates: start: 20101112, end: 20111110
  4. PLAVIX [Concomitant]
     Dosage: UNK
     Route: 048
  5. NORVASC [Concomitant]
     Dosage: UNK
     Route: 048
  6. ASPIRIN [Concomitant]
     Dosage: 81 MG, UNK
     Route: 048

REACTIONS (3)
  - STAPHYLOCOCCAL INFECTION [None]
  - ARTERIAL GRAFT [None]
  - POST PROCEDURAL INFECTION [None]
